FAERS Safety Report 17797306 (Version 2)
Quarter: 2020Q2

REPORT INFORMATION
  Report Type: Report from Study
  Country: IL (occurrence: IL)
  Receive Date: 20200518
  Receipt Date: 20200526
  Transmission Date: 20200714
  Serious: Yes (Other)
  Sender: FDA-Public Use
  Company Number: NVSC2020IL132651

PATIENT
  Age: 58 Year
  Sex: Female
  Weight: 75 kg

DRUGS (3)
  1. BYL719 [Suspect]
     Active Substance: ALPELISIB
     Dosage: 300 MG, QD
     Route: 065
     Dates: start: 20200303, end: 20200418
  2. BYL719 [Suspect]
     Active Substance: ALPELISIB
     Dosage: 300 MG, QD
     Route: 048
     Dates: start: 20200303
  3. BYL719 [Suspect]
     Active Substance: ALPELISIB
     Indication: BREAST CANCER METASTATIC
     Dosage: 300 MG, QD
     Route: 065
     Dates: start: 20200201

REACTIONS (1)
  - Hyperglycaemic hyperosmolar nonketotic syndrome [Recovered/Resolved]

NARRATIVE: CASE EVENT DATE: 20200419
